FAERS Safety Report 23352220 (Version 1)
Quarter: 2023Q4

REPORT INFORMATION
  Report Type: Spontaneous
  Country: US (occurrence: None)
  Receive Date: 20231229
  Receipt Date: 20231229
  Transmission Date: 20240110
  Serious: Yes (Hospitalization, Other)
  Sender: FDA-Public Use
  Company Number: None

PATIENT
  Age: 77 Year
  Sex: Male
  Weight: 146.25 kg

DRUGS (4)
  1. SEMAGLUTIDE [Suspect]
     Active Substance: SEMAGLUTIDE
     Indication: Weight decreased
     Dates: start: 20231012, end: 20231221
  2. LISINOPRIL [Concomitant]
     Active Substance: LISINOPRIL
  3. WEGOVY [Concomitant]
     Active Substance: SEMAGLUTIDE
  4. Xarelto,diclofenac [Concomitant]

REACTIONS (3)
  - Ileus paralytic [None]
  - Gastrointestinal infection [None]
  - Drug effect less than expected [None]

NARRATIVE: CASE EVENT DATE: 20231222
